FAERS Safety Report 24074973 (Version 1)
Quarter: 2024Q3

REPORT INFORMATION
  Report Type: Spontaneous
  Country: US (occurrence: US)
  Receive Date: 20240710
  Receipt Date: 20240710
  Transmission Date: 20241016
  Serious: No
  Sender: PIERRE FABRE MEDICAMENT
  Company Number: US-PFM-2023-06925

PATIENT
  Age: 66 Year
  Sex: Female

DRUGS (10)
  1. PROPRANOLOL [Suspect]
     Active Substance: PROPRANOLOL HYDROCHLORIDE
     Indication: Small fibre neuropathy
     Dosage: 30 MG/DAY
     Route: 065
  2. PROPRANOLOL [Suspect]
     Active Substance: PROPRANOLOL HYDROCHLORIDE
     Indication: Off label use
  3. FAMOTIDINE [Concomitant]
     Active Substance: FAMOTIDINE
     Indication: Small fibre neuropathy
     Dosage: 20 MG/DAY
     Route: 065
  4. CETIRIZINE [Concomitant]
     Active Substance: CETIRIZINE HYDROCHLORIDE
     Indication: Small fibre neuropathy
     Dosage: UNK
     Route: 065
  5. LORATADINE [Concomitant]
     Active Substance: LORATADINE
     Indication: Small fibre neuropathy
     Dosage: 10 MG/DAY
     Route: 065
  6. GABAPENTIN [Concomitant]
     Active Substance: GABAPENTIN
     Indication: Small fibre neuropathy
     Dosage: 300 MG/DAY
     Route: 065
  7. COLCHICINE [Concomitant]
     Active Substance: COLCHICINE
     Indication: Small fibre neuropathy
     Dosage: 0.3 MG/DAY
     Route: 065
  8. ASPIRIN [Concomitant]
     Active Substance: ASPIRIN
     Indication: Small fibre neuropathy
     Dosage: 81 MG/DAY
     Route: 065
  9. NALTREXONE [Concomitant]
     Active Substance: NALTREXONE
     Indication: Small fibre neuropathy
     Dosage: 1.2 MG/DAY
     Route: 065
  10. CROMOLYN [Concomitant]
     Active Substance: CROMOLYN
     Indication: Small fibre neuropathy
     Dosage: 200 MG/DAY
     Route: 065

REACTIONS (3)
  - Product use issue [Unknown]
  - Product use in unapproved indication [Unknown]
  - Off label use [Unknown]
